FAERS Safety Report 10012164 (Version 1)
Quarter: 2014Q1

REPORT INFORMATION
  Report Type: Spontaneous
  Country: US (occurrence: US)
  Receive Date: 20140314
  Receipt Date: 20140314
  Transmission Date: 20141002
  Serious: Yes (Death, Hospitalization)
  Sender: FDA-Public Use
  Company Number: PHHY2014US027980

PATIENT
  Age: 75 Year
  Sex: Female

DRUGS (4)
  1. METHYLPREDNISOLONE [Suspect]
     Dosage: 2 MG/KG, UNK
  2. METHYLPREDNISOLONE [Suspect]
     Dosage: 3 G, UNK
  3. AMIODARONE [Suspect]
  4. WARFARIN [Concomitant]

REACTIONS (13)
  - Gastrointestinal haemorrhage [Fatal]
  - Zygomycosis [Fatal]
  - Abdominal pain lower [Fatal]
  - Pulmonary toxicity [Recovered/Resolved]
  - Dyspnoea [Recovered/Resolved]
  - Cough [Recovered/Resolved]
  - Respiratory distress [Recovered/Resolved]
  - Lung infiltration [Recovered/Resolved]
  - Pleural effusion [Recovered/Resolved]
  - Atelectasis [Recovered/Resolved]
  - Interstitial lung disease [Recovered/Resolved]
  - Diarrhoea haemorrhagic [Unknown]
  - Gastrointestinal ulcer [Unknown]
